FAERS Safety Report 20655947 (Version 7)
Quarter: 2023Q2

REPORT INFORMATION
  Report Type: Report from Study
  Country: US (occurrence: US)
  Receive Date: 20220330
  Receipt Date: 20230518
  Transmission Date: 20230721
  Serious: Yes (Other)
  Sender: FDA-Public Use
  Company Number: US-002147023-NVSC2022US069543

PATIENT
  Age: 62 Year
  Sex: Male

DRUGS (42)
  1. COSENTYX [Suspect]
     Active Substance: SECUKINUMAB
     Indication: Psoriasis
     Dosage: UNK
     Route: 065
  2. COSENTYX [Suspect]
     Active Substance: SECUKINUMAB
     Indication: Psoriatic arthropathy
     Dosage: 150 MG, (AT THE RIGHT AND LEFT POSTERIOR UPPER ARM)
     Route: 065
  3. BETAMETHASONE [Suspect]
     Active Substance: BETAMETHASONE
     Indication: Psoriasis
     Dosage: 0.05 % (AUGMENTED BETAMETHASONE DIPROPIONATE)
     Route: 065
  4. BETAMETHASONE [Suspect]
     Active Substance: BETAMETHASONE
     Indication: Psoriatic arthropathy
  5. HYDROCORTISONE [Suspect]
     Active Substance: HYDROCORTISONE
     Indication: Psoriasis
     Dosage: 2.5 %
     Route: 065
  6. HYDROCORTISONE [Suspect]
     Active Substance: HYDROCORTISONE
     Indication: Psoriatic arthropathy
  7. GABAPENTIN [Suspect]
     Active Substance: GABAPENTIN
     Indication: Psoriasis
     Dosage: 300 MG
     Route: 048
  8. GABAPENTIN [Suspect]
     Active Substance: GABAPENTIN
     Indication: Psoriatic arthropathy
  9. METHOTREXATE [Suspect]
     Active Substance: METHOTREXATE
     Indication: Psoriasis
     Dosage: UNK
     Route: 065
  10. METHOTREXATE [Suspect]
     Active Substance: METHOTREXATE
     Indication: Psoriatic arthropathy
  11. TRIAMCINOLONE [Suspect]
     Active Substance: TRIAMCINOLONE
     Indication: Psoriasis
     Dosage: 0.1 %
     Route: 065
  12. TRIAMCINOLONE [Suspect]
     Active Substance: TRIAMCINOLONE
     Indication: Psoriatic arthropathy
  13. FLUOCINONIDE [Suspect]
     Active Substance: FLUOCINONIDE
     Indication: Psoriasis
     Dosage: 0.05 %
     Route: 065
  14. FLUOCINONIDE [Suspect]
     Active Substance: FLUOCINONIDE
     Indication: Psoriatic arthropathy
  15. ALBUTEROL [Suspect]
     Active Substance: ALBUTEROL
     Indication: Psoriasis
     Dosage: 105 UG
     Route: 065
  16. ALBUTEROL [Suspect]
     Active Substance: ALBUTEROL
     Indication: Psoriatic arthropathy
  17. ALFUZOSIN [Suspect]
     Active Substance: ALFUZOSIN
     Indication: Psoriasis
     Dosage: 10 MG
     Route: 048
  18. ALFUZOSIN [Suspect]
     Active Substance: ALFUZOSIN
     Indication: Psoriatic arthropathy
  19. ASPIRIN [Suspect]
     Active Substance: ASPIRIN
     Indication: Psoriasis
     Dosage: 81 MG
     Route: 048
  20. ASPIRIN [Suspect]
     Active Substance: ASPIRIN
     Indication: Psoriatic arthropathy
  21. CLOBETASOL [Suspect]
     Active Substance: CLOBETASOL
     Indication: Psoriasis
     Dosage: 0.05 %
     Route: 065
  22. CLOBETASOL [Suspect]
     Active Substance: CLOBETASOL
     Indication: Psoriatic arthropathy
  23. FINASTERIDE [Suspect]
     Active Substance: FINASTERIDE
     Indication: Psoriasis
     Dosage: 5 MG
     Route: 048
  24. FINASTERIDE [Suspect]
     Active Substance: FINASTERIDE
     Indication: Psoriatic arthropathy
  25. FUROSEMIDE [Suspect]
     Active Substance: FUROSEMIDE
     Indication: Psoriasis
     Dosage: 40 MG
     Route: 048
  26. FUROSEMIDE [Suspect]
     Active Substance: FUROSEMIDE
     Indication: Psoriatic arthropathy
  27. INSULIN NOS [Suspect]
     Active Substance: INSULIN NOS
     Indication: Psoriasis
     Dosage: UNK, (INSULIN ASPART 100 UNIT/ML)
     Route: 058
  28. INSULIN NOS [Suspect]
     Active Substance: INSULIN NOS
     Indication: Psoriatic arthropathy
  29. KETOCONAZOLE [Suspect]
     Active Substance: KETOCONAZOLE
     Indication: Psoriasis
     Dosage: 2 %
     Route: 065
  30. KETOCONAZOLE [Suspect]
     Active Substance: KETOCONAZOLE
     Indication: Psoriatic arthropathy
  31. LISINOPRIL [Suspect]
     Active Substance: LISINOPRIL
     Indication: Psoriasis
     Dosage: UNK, (LISINOPRIL-HYDROCHLOROTHIAZIDE 20 TO 25MG)
     Route: 048
  32. LISINOPRIL [Suspect]
     Active Substance: LISINOPRIL
     Indication: Psoriatic arthropathy
  33. MELOXICAM [Suspect]
     Active Substance: MELOXICAM
     Indication: Psoriasis
     Dosage: 7.5 MG
     Route: 048
  34. MELOXICAM [Suspect]
     Active Substance: MELOXICAM
     Indication: Psoriatic arthropathy
  35. ELIDEL [Suspect]
     Active Substance: PIMECROLIMUS
     Indication: Psoriasis
     Dosage: 1 %
     Route: 065
  36. ELIDEL [Suspect]
     Active Substance: PIMECROLIMUS
     Indication: Psoriatic arthropathy
  37. TIOTROPIUM [Suspect]
     Active Substance: TIOTROPIUM
     Indication: Psoriasis
     Dosage: 18 UG
  38. TIOTROPIUM [Suspect]
     Active Substance: TIOTROPIUM
     Indication: Psoriatic arthropathy
  39. AMMONIUM LACTATE [Suspect]
     Active Substance: AMMONIUM LACTATE
     Indication: Psoriasis
     Dosage: 12 % (LOTION)
     Route: 065
  40. AMMONIUM LACTATE [Suspect]
     Active Substance: AMMONIUM LACTATE
     Indication: Psoriatic arthropathy
  41. METOPROLOL [Suspect]
     Active Substance: METOPROLOL
     Indication: Psoriasis
     Dosage: 50 MG
     Route: 048
  42. METOPROLOL [Suspect]
     Active Substance: METOPROLOL
     Indication: Psoriatic arthropathy

REACTIONS (8)
  - Psoriatic arthropathy [Unknown]
  - Mobility decreased [Unknown]
  - Arthralgia [Unknown]
  - Psoriasis [Unknown]
  - Rash [Unknown]
  - Product use in unapproved indication [Unknown]
  - Drug ineffective [Unknown]
  - Therapeutic product ineffective [Unknown]

NARRATIVE: CASE EVENT DATE: 20190501
